FAERS Safety Report 23459156 (Version 1)
Quarter: 2024Q1

REPORT INFORMATION
  Report Type: Spontaneous
  Country: AU (occurrence: AU)
  Receive Date: 20240131
  Receipt Date: 20240131
  Transmission Date: 20240410
  Serious: Yes (Other)
  Sender: FDA-Public Use
  Company Number: AU-CIPLA LTD.-2024AU00961

PATIENT

DRUGS (13)
  1. LENALIDOMIDE [Suspect]
     Active Substance: LENALIDOMIDE
     Indication: Follicular lymphoma
     Dosage: 10 MILLIGRAM, QD
     Route: 048
     Dates: start: 20230518
  2. EPCORITAMAB [Suspect]
     Active Substance: EPCORITAMAB
     Indication: Follicular lymphoma
     Dosage: 24 MILLIGRAM, EVERY 1 WEEK
     Route: 058
     Dates: start: 20230518
  3. RITUXIMAB [Suspect]
     Active Substance: RITUXIMAB
     Indication: Follicular lymphoma
     Dosage: 700 MILLIGRAM, EVERY 4 WEEKS
     Route: 042
     Dates: start: 20230518, end: 20230720
  4. MEGA B [CYANOCOBALAMIN;PYRIDOXINE HYDROCHLORIDE;THIAMINE HYDROCHLORIDE [Concomitant]
     Indication: Vitamin B complex deficiency
     Dosage: UNK
     Route: 048
     Dates: start: 2020
  5. ALLOPURINOL [Concomitant]
     Active Substance: ALLOPURINOL
     Indication: Prophylaxis
     Dosage: 300 MILLIGRAM
     Route: 048
     Dates: start: 20230518
  6. ASPIRIN [Concomitant]
     Active Substance: ASPIRIN
     Indication: Hyperlipidaemia
     Dosage: 100 MILLIGRAM
     Route: 048
     Dates: start: 2000
  7. ATORVASTATIN [Concomitant]
     Active Substance: ATORVASTATIN
     Indication: Hyperlipidaemia
     Dosage: 10 MILLIGRAM, UNK
     Route: 048
     Dates: start: 2000
  8. CLONAZEPAM [Concomitant]
     Active Substance: CLONAZEPAM
     Indication: Restless legs syndrome
     Dosage: 0.5 MILLIGRAM, UNK
     Route: 048
     Dates: start: 1995
  9. CHOLECALCIFEROL [Concomitant]
     Active Substance: CHOLECALCIFEROL
     Indication: Vitamin D deficiency
     Dosage: 25 MILLIGRAM
     Route: 048
     Dates: start: 2020
  10. FILGRASTIM [Concomitant]
     Active Substance: FILGRASTIM
     Indication: Neutropenia
     Dosage: 0.3 MILLIGRAM
     Route: 058
     Dates: start: 20230622, end: 20230628
  11. FILGRASTIM [Concomitant]
     Active Substance: FILGRASTIM
     Dosage: 0.3 MILLIGRAM
     Route: 058
     Dates: start: 20230705, end: 20230710
  12. FLUCONAZOLE [Concomitant]
     Active Substance: FLUCONAZOLE
     Indication: Antifungal prophylaxis
     Dosage: 200 MILLIGRAM
     Route: 048
     Dates: start: 20230518
  13. VALACYCLOVIR HYDROCHLORIDE [Concomitant]
     Active Substance: VALACYCLOVIR HYDROCHLORIDE
     Indication: Antiviral prophylaxis
     Dosage: 500 MILLIGRAM
     Route: 048
     Dates: start: 20230711

REACTIONS (1)
  - Cytokine release syndrome [Recovered/Resolved]

NARRATIVE: CASE EVENT DATE: 20230727
